FAERS Safety Report 9086396 (Version 1)
Quarter: 2013Q1

REPORT INFORMATION
  Report Type: Report from Study
  Country: US (occurrence: US)
  Receive Date: 20130131
  Receipt Date: 20130131
  Transmission Date: 20140127
  Serious: No
  Sender: FDA-Public Use
  Company Number: US-ABBOTT-12P-163-0991256-00

PATIENT
  Age: 51 Year
  Sex: Female

DRUGS (1)
  1. HUMIRA [Suspect]
     Indication: RHEUMATOID ARTHRITIS
     Route: 058
     Dates: start: 20120825

REACTIONS (6)
  - Tongue discolouration [Unknown]
  - Oropharyngeal plaque [Unknown]
  - Oropharyngeal plaque [Unknown]
  - Candida infection [Unknown]
  - Oral pain [Unknown]
  - Mouth ulceration [Unknown]
